FAERS Safety Report 14083788 (Version 1)
Quarter: 2017Q4

REPORT INFORMATION
  Report Type: Spontaneous
  Country: FR (occurrence: FR)
  Receive Date: 20171013
  Receipt Date: 20171013
  Transmission Date: 20180321
  Serious: Yes (Hospitalization)
  Sender: FDA-Public Use
  Company Number: FR-BAYER-2017-190091

PATIENT
  Age: 70 Year
  Sex: Male

DRUGS (2)
  1. NEXAVAR [Suspect]
     Active Substance: SORAFENIB
     Indication: HEPATOCELLULAR CARCINOMA
     Dosage: 400 MG, BID
     Route: 048
     Dates: start: 20170824, end: 20170913
  2. DUPHALAC [Concomitant]
     Active Substance: LACTULOSE

REACTIONS (1)
  - Hepatic encephalopathy [Unknown]

NARRATIVE: CASE EVENT DATE: 20170913
